FAERS Safety Report 22255872 (Version 2)
Quarter: 2023Q2

REPORT INFORMATION
  Report Type: Report from Study
  Country: FR (occurrence: None)
  Receive Date: 20230426
  Receipt Date: 20230512
  Transmission Date: 20230721
  Serious: Yes (Hospitalization)
  Sender: FDA-Public Use
  Company Number: FR-ROCHE-3334670

PATIENT
  Age: 61 Year
  Sex: Female
  Weight: 72.6 kg

DRUGS (5)
  1. ATEZOLIZUMAB [Suspect]
     Active Substance: ATEZOLIZUMAB
     Indication: Colorectal cancer
     Dosage: MOST RECENT DOSE OF ATEZOLIZUMAB PRIOR TO EVENT ONSET ON 30/MAR/2023
     Route: 041
     Dates: start: 20230126, end: 20230417
  2. PRIMPERAN [Concomitant]
     Active Substance: METOCLOPRAMIDE HYDROCHLORIDE
  3. OXYCODONE HYDROCHLORIDE [Concomitant]
     Active Substance: OXYCODONE HYDROCHLORIDE
  4. LANSOPRAZOLE [Concomitant]
     Active Substance: LANSOPRAZOLE
  5. METHYLPREDNISOLONE [Concomitant]
     Active Substance: METHYLPREDNISOLONE
     Route: 042
     Dates: start: 20230417

REACTIONS (1)
  - Malignant ascites [Not Recovered/Not Resolved]

NARRATIVE: CASE EVENT DATE: 20230412
